FAERS Safety Report 23668312 (Version 1)
Quarter: 2024Q1

REPORT INFORMATION
  Report Type: Spontaneous
  Country: BG (occurrence: BG)
  Receive Date: 20240325
  Receipt Date: 20240325
  Transmission Date: 20240409
  Serious: Yes (Other)
  Sender: FDA-Public Use
  Company Number: BG-TEVA-2022-BG-2077159

PATIENT
  Age: 54 Year
  Sex: Male

DRUGS (3)
  1. PEMETREXED [Suspect]
     Active Substance: PEMETREXED
     Indication: Lung adenocarcinoma
     Dosage: DOSAGE TEXT: RECEIVED 4 CYCLES, 500 MG/M2
     Route: 065
     Dates: start: 2021
  2. CARBOPLATIN [Suspect]
     Active Substance: CARBOPLATIN
     Indication: Lung adenocarcinoma
     Dosage: DOSE: AREA UNDER THE CURVE (AUC) 5 MG/ML PER MIN; RECEIVED 4 CYCLES
     Route: 065
     Dates: start: 2021
  3. PEMBROLIZUMAB [Suspect]
     Active Substance: PEMBROLIZUMAB
     Indication: Lung adenocarcinoma
     Dosage: DOSAGE TEXT: RECEIVED 4 CYCLES, 200 MG
     Route: 065
     Dates: start: 2021

REACTIONS (3)
  - Interstitial lung disease [Recovering/Resolving]
  - Rash [Recovering/Resolving]
  - Pruritus [Recovering/Resolving]

NARRATIVE: CASE EVENT DATE: 20210101
